FAERS Safety Report 7230836-3 (Version None)
Quarter: 2011Q1

REPORT INFORMATION
  Report Type: 
  Country: None (occurrence: None)
  Receive Date: 20110118
  Receipt Date: 20110106
  Transmission Date: 20110831
  Serious: Yes (Hospitalization, Other)
  Sender: FDA-Public Use
  Company Number: US-ROCHE-680409

PATIENT
  Sex: Male
  Weight: 111.1 kg

DRUGS (2)
  1. ACCUTANE [Suspect]
     Indication: ACNE
     Route: 048
     Dates: start: 19960515, end: 19961001
  2. PRILOSEC [Concomitant]

REACTIONS (8)
  - HAEMORRHOIDS [None]
  - COLITIS ULCERATIVE [None]
  - INFLAMMATORY BOWEL DISEASE [None]
  - SYNCOPE [None]
  - GASTROOESOPHAGEAL REFLUX DISEASE [None]
  - RECTAL POLYP [None]
  - SMALL INTESTINAL OBSTRUCTION [None]
  - DEPRESSION [None]
